FAERS Safety Report 6528043-2 (Version None)
Quarter: 2010Q1

REPORT INFORMATION
  Report Type: 
  Country: None (occurrence: None)
  Receive Date: 20100105
  Receipt Date: 20100105
  Transmission Date: 20100710
  Serious: No
  Sender: FDA-Public Use
  Company Number: None

PATIENT
  Age: 68 Year
  Sex: Male

DRUGS (1)
  1. IODIXANOL [Suspect]
     Indication: CATHETERISATION CARDIAC
     Dosage: 100 ML ONCE IV
     Route: 042
     Dates: start: 20091029, end: 20091029

REACTIONS (2)
  - CONTRAST MEDIA REACTION [None]
  - RASH MACULAR [None]
